FAERS Safety Report 7370185-6 (Version None)
Quarter: 2011Q1

REPORT INFORMATION
  Report Type: 
  Country: None (occurrence: None)
  Receive Date: 20110323
  Receipt Date: 20100303
  Transmission Date: 20110831
  Serious: Yes (Hospitalization)
  Sender: FDA-Public Use
  Company Number: US-ASTRAZENECA-2010SE09369

PATIENT
  Sex: Male

DRUGS (5)
  1. WARFARIN [Concomitant]
  2. CILOSTAZOL [Concomitant]
  3. AVODART [Concomitant]
  4. ZESTRIL [Suspect]
     Route: 048
     Dates: start: 20090101, end: 20100201
  5. CARAFATE [Concomitant]

REACTIONS (3)
  - THROAT IRRITATION [None]
  - SWOLLEN TONGUE [None]
  - DYSPHAGIA [None]
